FAERS Safety Report 17653025 (Version 7)
Quarter: 2022Q3

REPORT INFORMATION
  Report Type: Report from Study
  Country: BR (occurrence: BR)
  Receive Date: 20200409
  Receipt Date: 20220624
  Transmission Date: 20221026
  Serious: Yes (Other)
  Sender: FDA-Public Use
  Company Number: NVSC2020BR034749

PATIENT
  Age: 42 Year
  Sex: Female
  Weight: 93 kg

DRUGS (20)
  1. XOLAIR [Suspect]
     Active Substance: OMALIZUMAB
     Indication: Product used for unknown indication
     Dosage: UNK (EVERY 6 WEEKS)
     Route: 065
     Dates: start: 201901
  2. XOLAIR [Suspect]
     Active Substance: OMALIZUMAB
     Dosage: 300 MG, EVERY 4 WEEKS
     Route: 058
     Dates: start: 20200110, end: 202101
  3. XOLAIR [Suspect]
     Active Substance: OMALIZUMAB
     Dosage: UNK
     Route: 065
     Dates: start: 20200210
  4. XOLAIR [Suspect]
     Active Substance: OMALIZUMAB
     Dosage: 300 MG, QMO
     Route: 058
     Dates: start: 20200316
  5. XOLAIR [Suspect]
     Active Substance: OMALIZUMAB
     Dosage: UNK
     Route: 065
     Dates: start: 20200414
  6. XOLAIR [Suspect]
     Active Substance: OMALIZUMAB
     Dosage: UNK
     Route: 065
     Dates: start: 20200512
  7. XOLAIR [Suspect]
     Active Substance: OMALIZUMAB
     Dosage: UNK
     Route: 065
     Dates: start: 20200609
  8. XOLAIR [Suspect]
     Active Substance: OMALIZUMAB
     Dosage: UNK, EVERY 6 WEEKS
     Route: 058
     Dates: end: 202110
  9. XOLAIR [Suspect]
     Active Substance: OMALIZUMAB
     Dosage: UNK, EVERY 4 WEEKS
     Route: 058
     Dates: start: 202110
  10. XOLAIR [Suspect]
     Active Substance: OMALIZUMAB
     Dosage: UNK
     Route: 065
  11. CETIRIZINE HYDROCHLORIDE [Suspect]
     Active Substance: CETIRIZINE HYDROCHLORIDE
     Indication: Product used for unknown indication
     Dosage: 2 DOSAGE FORM, Q12H
     Route: 048
     Dates: start: 201901
  12. PREDNISOLONE [Suspect]
     Active Substance: PREDNISOLONE
     Indication: Product used for unknown indication
     Dosage: 2 DOSAGE FORM (FOR 5 DAYS IN URTICARIA CRISIS)
     Route: 065
  13. LOSARTAN [Suspect]
     Active Substance: LOSARTAN
     Indication: Product used for unknown indication
     Dosage: 50 MG, BID
     Route: 065
  14. DESLORATADINE [Concomitant]
     Active Substance: DESLORATADINE
     Indication: Product used for unknown indication
     Dosage: UNK
     Route: 065
  15. BILASTINE [Concomitant]
     Active Substance: BILASTINE
     Indication: Product used for unknown indication
     Dosage: UNK
     Route: 065
  16. PREDNISONE [Concomitant]
     Active Substance: PREDNISONE
     Indication: Product used for unknown indication
     Dosage: UNK
     Route: 065
  17. DECADRON [Concomitant]
     Active Substance: DEXAMETHASONE
     Indication: Product used for unknown indication
     Dosage: UNK
     Route: 065
  18. HYDROXYZINE HYDROCHLORIDE [Concomitant]
     Active Substance: HYDROXYZINE HYDROCHLORIDE
     Indication: Product used for unknown indication
     Dosage: UNK
     Route: 065
  19. CETIRIZINE HYDROCHLORIDE [Concomitant]
     Active Substance: CETIRIZINE HYDROCHLORIDE
     Indication: Chronic spontaneous urticaria
     Dosage: 10 MG, 2 TABLETS 12/12 H
     Route: 048
     Dates: start: 201901
  20. OMEGA 3 [Concomitant]
     Active Substance: CAPSAICIN
     Indication: Product used for unknown indication
     Dosage: 1000 MG, TID
     Route: 065
     Dates: start: 2019

REACTIONS (26)
  - Osteomyelitis [Unknown]
  - Asthmatic crisis [Unknown]
  - Angioedema [Recovered/Resolved]
  - Urticaria [Recovered/Resolved]
  - Sinusitis [Recovered/Resolved]
  - Nasal obstruction [Recovered/Resolved]
  - Rhinorrhoea [Recovered/Resolved]
  - Gingival disorder [Unknown]
  - Fatigue [Unknown]
  - Speech disorder [Not Recovered/Not Resolved]
  - Oral pain [Not Recovered/Not Resolved]
  - Localised infection [Not Recovered/Not Resolved]
  - Wound [Unknown]
  - Bone pain [Unknown]
  - Exposed bone in jaw [Unknown]
  - Pruritus [Not Recovered/Not Resolved]
  - Oedema peripheral [Recovering/Resolving]
  - Sinusitis [Recovered/Resolved]
  - Inflammation [Unknown]
  - Ear pain [Not Recovered/Not Resolved]
  - Urticaria [Recovered/Resolved]
  - Sneezing [Unknown]
  - Cough [Unknown]
  - Urticaria [Unknown]
  - Drug ineffective [Unknown]
  - Off label use [Recovered/Resolved]

NARRATIVE: CASE EVENT DATE: 20190101
